FAERS Safety Report 9087298 (Version 2)
Quarter: 2013Q1

REPORT INFORMATION
  Report Type: Spontaneous
  Country: DE (occurrence: DE)
  Receive Date: 20130201
  Receipt Date: 20130225
  Transmission Date: 20140127
  Serious: Yes (Hospitalization, Other)
  Sender: FDA-Public Use
  Company Number: DE-ROCHE-1183898

PATIENT
  Age: 46 Year
  Sex: Male
  Weight: 98.3 kg

DRUGS (24)
  1. MYCOPHENOLATE MOFETIL [Suspect]
     Indication: RENAL TRANSPLANT
     Route: 048
     Dates: start: 20111024
  2. MYCOPHENOLATE MOFETIL [Suspect]
     Indication: IMMUNOSUPPRESSION
  3. LOSARTAN POTASSIUM [Suspect]
     Indication: IMMUNOSUPPRESSION
     Route: 048
  4. RAPAMUNE [Suspect]
     Indication: RENAL TRANSPLANT
     Route: 048
     Dates: start: 20120504
  5. RAPAMUNE [Suspect]
     Indication: IMMUNOSUPPRESSION
  6. DECORTIN H [Concomitant]
     Route: 065
     Dates: start: 20111024
  7. COTRIMOXAZOLE [Concomitant]
  8. BELOC-ZOK [Concomitant]
     Route: 065
     Dates: start: 20111024
  9. NORVASC [Concomitant]
     Route: 065
     Dates: start: 20111024
  10. PANTOZOL [Concomitant]
     Route: 065
     Dates: start: 20111024
  11. LOCOL [Concomitant]
     Route: 065
     Dates: start: 20111024
  12. VIGANTOLETTEN [Concomitant]
     Route: 065
     Dates: start: 20111024
  13. PROGRAF [Concomitant]
     Route: 065
  14. MYCOPHENOLATE MOFETIL [Concomitant]
     Route: 065
  15. PREDNISOLONE [Concomitant]
     Route: 065
     Dates: start: 20121219, end: 20121221
  16. PREDNISOLONE [Concomitant]
     Route: 065
  17. RAMIPRIL [Concomitant]
     Route: 065
  18. AMLODIPINE [Concomitant]
     Route: 065
  19. FLUVASTATIN [Concomitant]
     Route: 065
  20. LEVOTHYROXINE [Concomitant]
     Route: 065
  21. PANTOPRAZOLE [Concomitant]
     Route: 065
  22. CHOLECALCIFEROL [Concomitant]
     Route: 065
  23. RITUXIMAB [Concomitant]
     Route: 042
  24. RITUXIMAB [Concomitant]
     Route: 042
     Dates: start: 20130102

REACTIONS (1)
  - Kidney transplant rejection [Not Recovered/Not Resolved]
